FAERS Safety Report 7829192-9 (Version None)
Quarter: 2011Q4

REPORT INFORMATION
  Report Type: 
  Country: None (occurrence: None)
  Receive Date: 20111020
  Receipt Date: 20111014
  Transmission Date: 20120403
  Serious: Yes (Hospitalization, Other)
  Sender: FDA-Public Use
  Company Number: PHHY2011JP09438

PATIENT
  Sex: Male
  Weight: 63 kg

DRUGS (7)
  1. AMLODIPINE [Concomitant]
     Indication: METASTATIC RENAL CELL CARCINOMA
     Dosage: 7.5 MG,
     Route: 048
     Dates: start: 20090309, end: 20110602
  2. OMEPRAZOLE [Concomitant]
     Indication: METASTATIC RENAL CELL CARCINOMA
     Dosage: 20 MG,
     Route: 048
     Dates: start: 20091126, end: 20110602
  3. RAMITALATE [Concomitant]
     Dosage: 40 MG, UNK
     Route: 048
     Dates: end: 20110602
  4. AFINITOR [Suspect]
     Dosage: 5 MG, DAILY
     Route: 048
     Dates: start: 20100906, end: 20110512
  5. SUNITINIB MALATE [Concomitant]
     Indication: METASTATIC RENAL CELL CARCINOMA
     Dosage: 37.5 MG, UNK
     Route: 048
     Dates: start: 20081021, end: 20101121
  6. AFINITOR [Suspect]
     Indication: METASTATIC RENAL CELL CARCINOMA
     Dosage: 10 MG, DAILY
     Route: 048
     Dates: start: 20100712, end: 20100809
  7. NORVASC [Concomitant]
     Dosage: 5 MG,
     Route: 048
     Dates: end: 20110602

REACTIONS (5)
  - HYPERGLYCAEMIA [None]
  - NEOPLASM PROGRESSION [None]
  - CONDITION AGGRAVATED [None]
  - NEOPLASM MALIGNANT [None]
  - C-REACTIVE PROTEIN INCREASED [None]
